FAERS Safety Report 9765711 (Version 1)
Quarter: 2013Q4

REPORT INFORMATION
  Report Type: Spontaneous
  Country: US (occurrence: US)
  Receive Date: 20131217
  Receipt Date: 20131217
  Transmission Date: 20140711
  Serious: No
  Sender: FDA-Public Use
  Company Number: US-BIOGENIDEC-2013BI113766

PATIENT
  Age: 56 Year
  Sex: Female

DRUGS (8)
  1. TECFIDERA [Suspect]
     Indication: PRODUCT USED FOR UNKNOWN INDICATION
     Route: 048
  2. TECFIDERA [Suspect]
     Indication: PRODUCT USED FOR UNKNOWN INDICATION
     Route: 048
  3. ASPIR-81 [Concomitant]
  4. EXCEDRIN MIGRAINE [Concomitant]
  5. CITALOPRAM [Concomitant]
  6. PROVIGIL [Concomitant]
  7. TOPIRAMATE [Concomitant]
  8. PREMARIN [Concomitant]

REACTIONS (8)
  - Oropharyngeal pain [Unknown]
  - Paraesthesia [Unknown]
  - Nasal congestion [Unknown]
  - Depression [Unknown]
  - Crying [Unknown]
  - Nausea [Recovered/Resolved]
  - Hot flush [Unknown]
  - Pruritus [Unknown]
